FAERS Safety Report 17843669 (Version 2)
Quarter: 2020Q2

REPORT INFORMATION
  Report Type: Spontaneous
  Country: US (occurrence: US)
  Receive Date: 20200531
  Receipt Date: 20200620
  Transmission Date: 20200714
  Serious: No
  Sender: FDA-Public Use
  Company Number: US-ASTRAZENECA-2020SE69840

PATIENT
  Sex: Male
  Weight: 76.2 kg

DRUGS (2)
  1. RUPATA [Concomitant]
     Indication: DIABETES MELLITUS
  2. BYDUREON BCISE [Suspect]
     Active Substance: EXENATIDE
     Route: 065

REACTIONS (3)
  - Incorrect dose administered by device [Not Recovered/Not Resolved]
  - Injection site pain [Unknown]
  - Device leakage [Unknown]
